FAERS Safety Report 19836923 (Version 1)
Quarter: 2021Q3

REPORT INFORMATION
  Report Type: Spontaneous
  Country: NO (occurrence: NO)
  Receive Date: 20210914
  Receipt Date: 20210914
  Transmission Date: 20211014
  Serious: Yes (Death, Other)
  Sender: FDA-Public Use
  Company Number: NO-TAKEDA-2021TUS056569

PATIENT
  Age: 42 Year
  Sex: Female

DRUGS (2)
  1. ALBYL?E [Concomitant]
     Active Substance: ASPIRIN\MAGNESIUM OXIDE
     Indication: THROMBOCYTOSIS
     Dosage: 75 MILLIGRAM, QD
     Route: 048
     Dates: start: 20140811, end: 20210809
  2. XAGRID [Suspect]
     Active Substance: ANAGRELIDE HYDROCHLORIDE
     Indication: MYELOPROLIFERATIVE NEOPLASM
     Dosage: 0.5 MILLIGRAM
     Route: 048
     Dates: start: 20181120, end: 20210809

REACTIONS (12)
  - Chest pain [Fatal]
  - Cardiac failure acute [Fatal]
  - Haemoptysis [Fatal]
  - Cardio-respiratory arrest [Fatal]
  - Productive cough [Fatal]
  - Ventricular hypokinesia [Fatal]
  - Pulmonary oedema [Fatal]
  - Myocardial infarction [Fatal]
  - Dyspnoea [Fatal]
  - Stress cardiomyopathy [Fatal]
  - Ejection fraction decreased [Fatal]
  - Cerebral infarction [Fatal]

NARRATIVE: CASE EVENT DATE: 20210806
